FAERS Safety Report 5676403-4 (Version None)
Quarter: 2008Q1

REPORT INFORMATION
  Report Type: 
  Country: None (occurrence: None)
  Receive Date: 20080321
  Receipt Date: 20080310
  Transmission Date: 20080703
  Serious: Yes (Hospitalization, Other)
  Sender: FDA-Public Use
  Company Number: US-PFIZER INC-2008023602

PATIENT
  Sex: Female
  Weight: 84.4 kg

DRUGS (3)
  1. LYRICA [Suspect]
     Indication: FIBROMYALGIA
     Route: 048
     Dates: start: 20070101, end: 20080101
  2. OXYCODONE HCL [Concomitant]
     Route: 048
  3. CLONAZEPAM [Concomitant]
     Route: 048

REACTIONS (5)
  - DYSPNOEA [None]
  - LACK OF SPONTANEOUS SPEECH [None]
  - PHARYNGEAL DISORDER [None]
  - PULMONARY OEDEMA [None]
  - SWOLLEN TONGUE [None]
